FAERS Safety Report 5917441-3 (Version None)
Quarter: 2008Q4

REPORT INFORMATION
  Report Type: 
  Country: None (occurrence: None)
  Receive Date: 20081009
  Receipt Date: 20081009
  Transmission Date: 20090506
  Serious: Yes (Death)
  Sender: FDA-Public Use
  Company Number: None

PATIENT
  Sex: Female
  Weight: 20 kg

DRUGS (4)
  1. VALPROIC ACID [Suspect]
     Indication: CONVULSION
     Dosage: 125MG TID PO
     Route: 048
  2. LEVETIRACETAM [Concomitant]
  3. PHENOBARBITAL TAB [Concomitant]
  4. TOPIRAMATE [Concomitant]

REACTIONS (1)
  - PANCREATITIS NECROTISING [None]
